FAERS Safety Report 7669573-X (Version None)
Quarter: 2011Q3

REPORT INFORMATION
  Report Type: 
  Country: None (occurrence: None)
  Receive Date: 20110808
  Receipt Date: 20110728
  Transmission Date: 20111222
  Serious: Yes (Hospitalization)
  Sender: FDA-Public Use
  Company Number: CH-ASTRAZENECA-2011SE44869

PATIENT
  Age: 80 Year
  Sex: Female

DRUGS (9)
  1. CARVEDILOL [Interacting]
     Route: 048
     Dates: end: 20110303
  2. ISOPTIN [Interacting]
     Route: 048
     Dates: start: 20110302, end: 20110303
  3. PREDNISONE [Concomitant]
     Route: 048
  4. LEVOTHYROXINE SODIUM [Concomitant]
     Route: 048
  5. LERCANIDIPINE [Concomitant]
     Route: 048
  6. ENALAPRIL MALEATE [Interacting]
     Route: 048
  7. ACENOCOUMAROL [Concomitant]
     Route: 048
  8. ATACAND [Suspect]
     Route: 048
  9. DIGOXIN [Concomitant]

REACTIONS (6)
  - ATRIOVENTRICULAR BLOCK [None]
  - RENAL FAILURE CHRONIC [None]
  - CARDIOGENIC SHOCK [None]
  - LIVER DISORDER [None]
  - DRUG INTERACTION [None]
  - HYPERKALAEMIA [None]
